FAERS Safety Report 8156465 (Version 4)
Quarter: 2013Q3

REPORT INFORMATION
  Report Type: Spontaneous
  Country: US (occurrence: US)
  Receive Date: 20110926
  Receipt Date: 20130820
  Transmission Date: 20140515
  Serious: Yes (Hospitalization)
  Sender: FDA-Public Use
  Company Number: US-GLAXOSMITHKLINE-A0945157A

PATIENT
  Age: 43 Year
  Sex: Female

DRUGS (5)
  1. IMITREX [Suspect]
     Indication: MIGRAINE
     Route: 058
     Dates: start: 200005
  2. NO CONCURRENT MEDICATION [Concomitant]
  3. STEROID [Concomitant]
     Indication: PAIN
  4. GABAPENTIN [Concomitant]
  5. ESTAZOLAM [Concomitant]

REACTIONS (25)
  - Loss of consciousness [Recovered/Resolved]
  - Paralysis [Unknown]
  - Apparent death [Unknown]
  - Visual acuity reduced [Not Recovered/Not Resolved]
  - Sensation of heaviness [Unknown]
  - Burning sensation [Unknown]
  - Paraesthesia [Unknown]
  - Dizziness [Unknown]
  - Motor dysfunction [Unknown]
  - Asthenia [Unknown]
  - Diarrhoea [Unknown]
  - Vomiting [Unknown]
  - Flushing [Unknown]
  - Urinary tract infection [Unknown]
  - Abasia [Unknown]
  - Anhedonia [Not Recovered/Not Resolved]
  - Myelitis transverse [Unknown]
  - Peroneal nerve palsy [Unknown]
  - Gait disturbance [Unknown]
  - Muscular weakness [Unknown]
  - Pain [Unknown]
  - Rectal haemorrhage [Unknown]
  - Incontinence [Unknown]
  - Urinary tract infection [Unknown]
  - Polyp [Unknown]
